FAERS Safety Report 18875421 (Version 2)
Quarter: 2021Q2

REPORT INFORMATION
  Report Type: Spontaneous
  Country: CH (occurrence: CH)
  Receive Date: 20210210
  Receipt Date: 20210414
  Transmission Date: 20210717
  Serious: Yes (Other)
  Sender: FDA-Public Use
  Company Number: CH-AMGEN-CHESP2021018990

PATIENT

DRUGS (2)
  1. ZOLEDRONATE [Concomitant]
     Active Substance: ZOLEDRONIC ACID
     Dosage: UNK
  2. PROLIA [Suspect]
     Active Substance: DENOSUMAB
     Indication: PRODUCT USED FOR UNKNOWN INDICATION
     Dosage: UNK
     Route: 065

REACTIONS (8)
  - Hip fracture [Unknown]
  - Spinal fracture [Unknown]
  - Rib fracture [Unknown]
  - Osteoporotic fracture [Unknown]
  - Bone density decreased [Unknown]
  - Pelvic fracture [Unknown]
  - Fracture [Unknown]
  - Humerus fracture [Unknown]
